FAERS Safety Report 5310425-8 (Version None)
Quarter: 2007Q2

REPORT INFORMATION
  Report Type: 
  Country: None (occurrence: None)
  Receive Date: 20070427
  Receipt Date: 20070417
  Transmission Date: 20071010
  Serious: Yes (Death)
  Sender: FDA-Public Use
  Company Number: RO-ABBOTT-07P-135-0365245-00

PATIENT
  Age: 14 Year
  Sex: Male
  Weight: 60 kg

DRUGS (8)
  1. SEVORANE LIQUID FOR INHALATION [Suspect]
     Indication: MAINTENANCE OF ANAESTHESIA
     Dates: start: 20070416, end: 20070416
  2. ROCURONIUM BROMIDE [Suspect]
     Indication: GENERAL ANAESTHESIA
     Route: 042
     Dates: start: 20070416, end: 20070416
  3. ROCURONIUM BROMIDE [Suspect]
     Indication: HYPOTONIA
  4. ROCURONIUM BROMIDE [Suspect]
     Indication: MAINTENANCE OF ANAESTHESIA
  5. FENTANYL [Concomitant]
     Indication: GENERAL ANAESTHESIA
     Route: 042
     Dates: start: 20070416, end: 20070416
  6. FENTANYL [Concomitant]
     Indication: MAINTENANCE OF ANAESTHESIA
  7. MIDAZOLAM HCL [Concomitant]
     Indication: GENERAL ANAESTHESIA
     Route: 042
     Dates: start: 20070416, end: 20070416
  8. PROPOFOL [Concomitant]
     Indication: GENERAL ANAESTHESIA
     Dates: start: 20070416, end: 20070416

REACTIONS (4)
  - ACIDOSIS [None]
  - CARDIO-RESPIRATORY ARREST [None]
  - HYPERTHERMIA [None]
  - MUSCLE RIGIDITY [None]
